FAERS Safety Report 12444629 (Version 3)
Quarter: 2016Q3

REPORT INFORMATION
  Report Type: Report from Study
  Country: US (occurrence: US)
  Receive Date: 20160607
  Receipt Date: 20160728
  Transmission Date: 20161109
  Serious: Yes (Hospitalization, Other)
  Sender: FDA-Public Use
  Company Number: US-UCBSA-2016016385

PATIENT
  Age: 59 Year
  Sex: Female

DRUGS (3)
  1. BOTOX [Concomitant]
     Active Substance: ONABOTULINUMTOXINA
     Indication: MIGRAINE
     Dosage: UNK
  2. DARVOCET [Concomitant]
     Active Substance: ACETAMINOPHEN\PROPOXYPHENE HYDROCHLORIDE
     Indication: PRODUCT USED FOR UNKNOWN INDICATION
     Dosage: UNK
  3. CERTOLIZUMAB PEGOL [Suspect]
     Active Substance: CERTOLIZUMAB PEGOL
     Indication: CROHN^S DISEASE
     Dosage: 200 MG, EV 2 WEEKS(QOW), SOLUTION FOR INJECTION IN PRE-FILLED SYRINGE (NDC NO 50474-710-79)
     Dates: start: 2008

REACTIONS (13)
  - Gastrointestinal stoma complication [Unknown]
  - Fall [Unknown]
  - Off label use [Unknown]
  - Crohn^s disease [Unknown]
  - Anal fistula [Unknown]
  - Nausea [Unknown]
  - Lower limb fracture [Unknown]
  - Colostomy infection [Unknown]
  - Pyrexia [Recovered/Resolved]
  - Stomal hernia [Recovered/Resolved with Sequelae]
  - Abdominal pain [Unknown]
  - Female genital tract fistula [Recovering/Resolving]
  - Hepatitis C [Recovered/Resolved]

NARRATIVE: CASE EVENT DATE: 2008
